FAERS Safety Report 5598559-4 (Version None)
Quarter: 2008Q1

REPORT INFORMATION
  Report Type: 
  Country: None (occurrence: None)
  Receive Date: 20080122
  Receipt Date: 20080115
  Transmission Date: 20080703
  Serious: Yes (Death, Hospitalization, Other)
  Sender: FDA-Public Use
  Company Number: US-ELI_LILLY_AND_COMPANY-US200801003131

PATIENT
  Age: 65 Year
  Sex: Female

DRUGS (2)
  1. GEMCITABINE HCL [Suspect]
     Indication: PANCREATIC CARCINOMA NON-RESECTABLE
     Dosage: OTHER,DAYS1 AND 15 OF EACH 28 DAY C
     Route: 042
  2. ERLOTINIB [Concomitant]
     Indication: PANCREATIC CARCINOMA NON-RESECTABLE
     Dosage: 100 MG, DAILY (1/D)
     Route: 048

REACTIONS (3)
  - FALL [None]
  - LEUKOENCEPHALOPATHY [None]
  - RESPIRATORY FAILURE [None]
